FAERS Safety Report 7830682-3 (Version None)
Quarter: 2011Q4

REPORT INFORMATION
  Report Type: 
  Country: None (occurrence: None)
  Receive Date: 20111021
  Receipt Date: 20111014
  Transmission Date: 20120403
  Serious: Yes (Other)
  Sender: FDA-Public Use
  Company Number: FR-BRISTOL-MYERS SQUIBB COMPANY-16180630

PATIENT
  Age: 29 Year
  Sex: Male

DRUGS (3)
  1. METHYLPREDNISOLONE [Concomitant]
     Indication: PREMEDICATION
     Route: 042
     Dates: start: 20110427, end: 20110427
  2. ERBITUX [Suspect]
     Indication: OROPHARYNGEAL CANCER STAGE UNSPECIFIED
     Route: 042
     Dates: start: 20110427, end: 20110427
  3. POLARAMINE [Concomitant]
     Indication: PREMEDICATION
     Dosage: 5ML/1ML
     Route: 042
     Dates: start: 20110427, end: 20110427

REACTIONS (1)
  - PNEUMOTHORAX [None]
